FAERS Safety Report 4633957-4 (Version None)
Quarter: 2005Q2

REPORT INFORMATION
  Report Type: 
  Country: None (occurrence: None)
  Receive Date: 20050413
  Receipt Date: 20040610
  Transmission Date: 20051028
  Serious: Yes (Hospitalization)
  Sender: FDA-Public Use
  Company Number: DE-JNJFOC-20040603232

PATIENT
  Age: 62 Year
  Sex: Female

DRUGS (9)
  1. ABCIXIMAB [Suspect]
     Indication: ANTICOAGULANT THERAPY
     Route: 042
  2. CLOZARIL [Suspect]
     Indication: SCHIZOPHRENIA
     Route: 049
  3. THROXINE [Concomitant]
     Route: 049
  4. ASPIRIN [Concomitant]
     Route: 049
  5. GLIMEPIRIDE [Concomitant]
     Route: 049
  6. HYOSCINE HBR HYT [Concomitant]
     Route: 049
  7. LANTUS [Concomitant]
     Route: 058
  8. PERINDOPRIL [Concomitant]
     Route: 049
  9. METFORMIN HCL [Concomitant]
     Route: 049

REACTIONS (7)
  - DRUG INTERACTION [None]
  - HYPERGLYCAEMIA [None]
  - HYPERTENSION [None]
  - HYPONATRAEMIA [None]
  - MYOCARDIAL INFARCTION [None]
  - PLATELET COUNT DECREASED [None]
  - SINUS TACHYCARDIA [None]
